FAERS Safety Report 20638904 (Version 1)
Quarter: 2022Q1

REPORT INFORMATION
  Report Type: Spontaneous
  Country: US (occurrence: US)
  Receive Date: 20220325
  Receipt Date: 20220325
  Transmission Date: 20220423
  Serious: No
  Sender: FDA-Public Use
  Company Number: US-Vifor (International) Inc.-VIT-2022-01439

PATIENT
  Age: 40 Year
  Sex: Male

DRUGS (11)
  1. VELTASSA [Suspect]
     Active Substance: PATIROMER
     Indication: Hyperkalaemia
     Dosage: AVOID TAKING OTHER ORAL MEDICATIONS 3 HOURS BEFORE OR AFTER
     Route: 048
     Dates: start: 20211102
  2. ATORVASTATIN [Concomitant]
     Active Substance: ATORVASTATIN
  3. DDAVP [Concomitant]
     Active Substance: DESMOPRESSIN ACETATE
  4. HYDROCODONE BITARTRATE AND ACETAMINOPHEN [Concomitant]
     Active Substance: ACETAMINOPHEN\HYDROCODONE BITARTRATE
     Dosage: 5-325 MG
  5. LANTUS [Concomitant]
     Active Substance: INSULIN GLARGINE
     Dosage: 100/ML
     Route: 040
  6. METOPROLOL SUCCINATE [Concomitant]
     Active Substance: METOPROLOL SUCCINATE
  7. NOVAREL [Concomitant]
     Active Substance: CHORIOGONADOTROPIN ALFA
     Dosage: 1000 UNT
     Route: 040
  8. NOVOLCG [Concomitant]
     Dosage: 100/ML
     Route: 040
  9. SIROLIMUS [Concomitant]
     Active Substance: SIROLIMUS
  10. SIROLIMUS [Concomitant]
     Active Substance: SIROLIMUS
  11. URSODIOL [Concomitant]
     Active Substance: URSODIOL

REACTIONS (1)
  - Constipation [Unknown]
